FAERS Safety Report 5358284-1 (Version None)
Quarter: 2007Q2

REPORT INFORMATION
  Report Type: 
  Country: None (occurrence: None)
  Receive Date: 20070613
  Receipt Date: 20070613
  Transmission Date: 20071010
  Serious: Yes (Other)
  Sender: FDA-Public Use
  Company Number: None

PATIENT
  Age: 19 Year
  Sex: Male
  Weight: 37.1 kg

DRUGS (16)
  1. TYGACIL [Suspect]
     Indication: BACTERIAL INFECTION
     Dosage: 50MG IVPB
     Route: 040
     Dates: start: 20070611
  2. TYGACIL [Suspect]
     Indication: BLOOD DISORDER
     Dosage: 50MG IVPB
     Route: 040
     Dates: start: 20070611
  3. TYGACIL [Suspect]
     Indication: CATHETER RELATED COMPLICATION
     Dosage: 50MG IVPB
     Route: 040
     Dates: start: 20070611
  4. TYGACIL [Suspect]
     Indication: BACTERIAL INFECTION
     Dosage: 50MG IVPB
     Route: 040
     Dates: start: 20070612
  5. TYGACIL [Suspect]
     Indication: BLOOD DISORDER
     Dosage: 50MG IVPB
     Route: 040
     Dates: start: 20070612
  6. TYGACIL [Suspect]
     Indication: CATHETER RELATED COMPLICATION
     Dosage: 50MG IVPB
     Route: 040
     Dates: start: 20070612
  7. TYLENOL [Concomitant]
  8. DUONEB [Concomitant]
  9. DIFLUCAN [Concomitant]
  10. GENTAMICIN [Concomitant]
  11. NEBUTOL [Concomitant]
  12. HEPARIN [Concomitant]
  13. PREVACID [Concomitant]
  14. PHENOBARBITAL TAB [Concomitant]
  15. DILANTIN [Concomitant]
  16. FLORASTOR [Concomitant]

REACTIONS (1)
  - LIPASE INCREASED [None]
